FAERS Safety Report 8792243 (Version 1)
Quarter: 2012Q4

REPORT INFORMATION
  Report Type: 
  Country: US (occurrence: US)
  Receive Date: 20120918
  Receipt Date: 20120918
  Transmission Date: 20130627
  Serious: No
  Sender: FDA-Public Use
  Company Number: US-VERTEX PHARMACEUTICAL INC.-2012-020227

PATIENT
  Sex: Female
  Weight: 88.9 kg

DRUGS (6)
  1. VX-950 [Suspect]
     Indication: HEPATITIS C
     Dosage: 750 mg, tid
     Route: 048
     Dates: start: 201207
  2. RIBASPHERE [Concomitant]
     Indication: HEPATITIS C
     Dosage: 600 mg, bid
     Route: 048
     Dates: start: 201207
  3. PEGASYS [Concomitant]
     Indication: HEPATITIS C
     Dosage: 180 ?g, UNK
     Route: 058
     Dates: start: 201207
  4. ROLAIDS                            /00069401/ [Concomitant]
     Dosage: UNK, prn
  5. PROZAC [Concomitant]
     Dosage: 10 mg, qd
  6. MULTIVITAMIN                       /00097801/ [Concomitant]
     Dosage: UNK, qd

REACTIONS (2)
  - Haemoptysis [Unknown]
  - Gastrooesophageal reflux disease [Unknown]
